FAERS Safety Report 10040519 (Version 1)
Quarter: 2014Q1

REPORT INFORMATION
  Report Type: Spontaneous
  Country: US (occurrence: US)
  Receive Date: 20140327
  Receipt Date: 20140327
  Transmission Date: 20141002
  Serious: No
  Sender: FDA-Public Use
  Company Number: US-TEVA-437395USA

PATIENT
  Sex: Male

DRUGS (2)
  1. ZIAC [Suspect]
     Dosage: BISOPROLOL FUMARATE 5MG/HCTZ 6.25MG
     Route: 048
     Dates: end: 20131007
  2. ZIAC [Suspect]
     Dosage: BISOPROLOL FUMARATE 10MG/HCTZ 6.25MG
     Route: 048
     Dates: start: 20131007

REACTIONS (5)
  - Hypertension [Not Recovered/Not Resolved]
  - Oedema [Not Recovered/Not Resolved]
  - Alopecia [Not Recovered/Not Resolved]
  - Drug ineffective [Not Recovered/Not Resolved]
  - Anxiety [Unknown]
